FAERS Safety Report 18001100 (Version 2)
Quarter: 2021Q1

REPORT INFORMATION
  Report Type: Spontaneous
  Country: US (occurrence: US)
  Receive Date: 20200709
  Receipt Date: 20210202
  Transmission Date: 20210419
  Serious: Yes (Other)
  Sender: FDA-Public Use
  Company Number: US-MYLANLABS-2020M1061599

PATIENT
  Age: 69 Year
  Sex: Female

DRUGS (6)
  1. VALSARTAN MYLAN [Suspect]
     Active Substance: VALSARTAN
     Indication: HYPERTENSION
     Dosage: 80 MILLIGRAM
     Dates: start: 20150122, end: 20160808
  2. ATORVASTATIN [Concomitant]
     Active Substance: ATORVASTATIN
     Indication: DEPRESSION
     Dosage: 40 MILLIGRAM, QD
     Dates: start: 20140127
  3. VALSARTAN MYLAN [Suspect]
     Active Substance: VALSARTAN
     Dosage: 80 MILLIGRAM
     Dates: start: 20150122, end: 20160808
  4. PANTOPRAZOLE SODIUM. [Concomitant]
     Active Substance: PANTOPRAZOLE SODIUM
     Indication: OESOPHAGEAL DISORDER
     Dosage: 40 MILLIGRAM, QD
     Dates: start: 20140127
  5. VALSARTAN. [Suspect]
     Active Substance: VALSARTAN
     Indication: HYPERTENSION
     Dosage: 80 MILLIGRAM
     Dates: start: 20160805, end: 20180406
  6. PAROXETINE HCL [Concomitant]
     Active Substance: PAROXETINE HYDROCHLORIDE
     Indication: DEPRESSION
     Dosage: 20 MILLIGRAM, QD
     Dates: start: 20140117

REACTIONS (1)
  - Rectal cancer stage IV [Unknown]

NARRATIVE: CASE EVENT DATE: 20171031
